FAERS Safety Report 9045343 (Version 2)
Quarter: 2014Q1

REPORT INFORMATION
  Report Type: Report from Study
  Country: JP (occurrence: JP)
  Receive Date: 20130131
  Receipt Date: 20140213
  Transmission Date: 20141002
  Serious: Yes (Other)
  Sender: FDA-Public Use
  Company Number: JP-GILEAD-2013-0068814

PATIENT
  Sex: Male

DRUGS (7)
  1. AMBRISENTAN [Suspect]
     Indication: PULMONARY ARTERIAL HYPERTENSION
     Dosage: 2.5 MG, QD
     Dates: start: 20121204, end: 20121210
  2. REVATIO [Concomitant]
     Indication: PULMONARY ARTERIAL HYPERTENSION
     Route: 048
  3. PREDNISOLONE [Concomitant]
     Indication: PULMONARY ARTERIAL HYPERTENSION
     Route: 048
  4. TAKEPRON [Concomitant]
     Dosage: UNK
     Route: 048
     Dates: end: 20121210
  5. NEORAL [Concomitant]
     Indication: PULMONARY ARTERIAL HYPERTENSION
     Dosage: UNK
     Route: 048
     Dates: end: 20121210
  6. ACTONEL [Concomitant]
     Dosage: UNK
     Route: 048
     Dates: end: 20121210
  7. FUROSEMIDE [Concomitant]
     Dosage: UNK
     Route: 048
     Dates: end: 20121210

REACTIONS (1)
  - No adverse event [Unknown]
